FAERS Safety Report 8236884-9 (Version None)
Quarter: 2012Q1

REPORT INFORMATION
  Report Type: 
  Country: None (occurrence: None)
  Receive Date: 20120327
  Receipt Date: 20120319
  Transmission Date: 20120608
  Serious: Yes (Other)
  Sender: FDA-Public Use
  Company Number: US-US-EMD SERONO, INC.-7119736

PATIENT
  Age: 42 Year
  Sex: Male

DRUGS (1)
  1. CLOMIPHENE CITRATE [Suspect]
     Indication: HYPOGONADISM MALE

REACTIONS (3)
  - POLYCYTHAEMIA VERA [None]
  - OFF LABEL USE [None]
  - BLOOD TESTOSTERONE INCREASED [None]
